FAERS Safety Report 9215197 (Version 1)
Quarter: 2013Q2

REPORT INFORMATION
  Report Type: Report from Study
  Country: NZ (occurrence: NZ)
  Receive Date: 20130405
  Receipt Date: 20130405
  Transmission Date: 20140414
  Serious: Yes (Hospitalization, Disabling)
  Sender: FDA-Public Use
  Company Number: NZ-AMGEN-NZLCT2012017017

PATIENT
  Age: 79 Year
  Sex: Male

DRUGS (10)
  1. DENOSUMAB [Suspect]
     Indication: PROSTATE CANCER
     Dates: start: 20070420, end: 20101028
  2. CALCIUM CARBONATE [Concomitant]
     Dosage: 1.25 G, UNK
     Route: 048
     Dates: start: 20070420
  3. VITAMIN D [Concomitant]
     Dosage: 300 IU, QD
     Route: 048
  4. CITALOPRAM [Concomitant]
     Indication: DEPRESSION
     Dosage: 20 MG, QD
     Route: 048
     Dates: start: 20080501
  5. HYDROXOCOBALAMIN [Concomitant]
     Indication: VITAMIN D DEFICIENCY
     Dosage: 1 MG, Q3MO
     Route: 030
     Dates: start: 20080502
  6. OMEPRAZOLE [Concomitant]
     Indication: GASTROOESOPHAGEAL REFLUX DISEASE
     Dosage: 20 MG, BID
     Route: 048
     Dates: start: 20100416
  7. ACCUPRIL [Concomitant]
     Indication: HYPERTENSION
     Dosage: UNK
     Route: 048
     Dates: start: 20090127
  8. AUGMENTIN [Concomitant]
     Indication: LOCAL SWELLING
     Dosage: UNK
     Dates: start: 20100419, end: 20100425
  9. CANDESARTAN [Concomitant]
     Indication: HYPERTENSION
     Dosage: 16 MG, UNK
  10. DEXAMETHASONE [Concomitant]

REACTIONS (1)
  - Osteonecrosis of jaw [Recovering/Resolving]
